FAERS Safety Report 15651782 (Version 1)
Quarter: 2018Q4

REPORT INFORMATION
  Report Type: Spontaneous
  Country: GB (occurrence: GB)
  Receive Date: 20181123
  Receipt Date: 20181123
  Transmission Date: 20190205
  Serious: Yes (Other)
  Sender: FDA-Public Use
  Company Number: GB-ASTRAZENECA-2018SF51512

PATIENT
  Age: 63 Year
  Sex: Female
  Weight: 92.6 kg

DRUGS (11)
  1. SYMBICORT [Suspect]
     Active Substance: BUDESONIDE\FORMOTEROL FUMARATE DIHYDRATE
     Dosage: 200/6, UNKNOWN FREQUENCY UNKNOWN
     Route: 055
  2. RELVAR ELLIPTA [Concomitant]
     Active Substance: FLUTICASONE FUROATE\VILANTEROL TRIFENATATE
     Route: 055
     Dates: start: 20181003, end: 20181015
  3. FEXOFENADINE [Concomitant]
     Active Substance: FEXOFENADINE\FEXOFENADINE HYDROCHLORIDE
     Dates: start: 20181017
  4. VENLAFAXINE [Concomitant]
     Active Substance: VENLAFAXINE HYDROCHLORIDE
     Dates: start: 20180808, end: 20181031
  5. MOMETASONE [Concomitant]
     Active Substance: MOMETASONE
     Dosage: APPLY 1 DF DAILY
     Dates: start: 20181017
  6. PARAFFIN [Concomitant]
     Active Substance: PARAFFIN
     Dosage: APPLY 1 DF
     Dates: start: 20181017
  7. CETIRIZINE [Concomitant]
     Active Substance: CETIRIZINE HYDROCHLORIDE
     Dates: start: 20180822
  8. FLUTIFORM [Concomitant]
     Active Substance: FLUTICASONE PROPIONATE\FORMOTEROL FUMARATE
     Route: 055
     Dates: start: 20180822, end: 20181003
  9. ALVERINE [Concomitant]
     Active Substance: ALVERINE
     Dates: start: 20181005
  10. CLOBETASONE [Concomitant]
     Active Substance: CLOBETASONE
     Dosage: 0.05 %, APPLY 1-2 TIMES DAILY
     Dates: start: 20180918
  11. HYDROCORTISONE. [Concomitant]
     Active Substance: HYDROCORTISONE
     Dosage: APPLY 2 DF DAILY
     Dates: start: 20181017

REACTIONS (1)
  - Swelling [Not Recovered/Not Resolved]

NARRATIVE: CASE EVENT DATE: 20181017
